FAERS Safety Report 19160815 (Version 2)
Quarter: 2021Q2

REPORT INFORMATION
  Report Type: Spontaneous
  Country: IT (occurrence: IT)
  Receive Date: 20210421
  Receipt Date: 20210423
  Transmission Date: 20210717
  Serious: Yes (Death, Hospitalization, Other)
  Sender: FDA-Public Use
  Company Number: IT-CELLTRION INC.-2021IT005333

PATIENT

DRUGS (12)
  1. DOCETAXEL. [Concomitant]
     Active Substance: DOCETAXEL
     Indication: BREAST CANCER METASTATIC
     Dosage: ON DAY 1 OF 21 DAYS CYCLE.
     Route: 065
     Dates: start: 2014
  2. TAMOXIFENE [TAMOXIFEN] [Concomitant]
     Active Substance: TAMOXIFEN
     Indication: BREAST CANCER METASTATIC
     Dosage: 20 MG, DAILY
     Route: 065
     Dates: start: 20150217
  3. PACLITAXEL. [Suspect]
     Active Substance: PACLITAXEL
     Indication: BREAST CANCER METASTATIC
     Dosage: 76 MG, EVERY 1 WEEK (50% REDUCED DOSE DUE TO LIVER DYSFUNCTION)
     Route: 065
     Dates: start: 20170519
  4. PERTUZUMAB. [Suspect]
     Active Substance: PERTUZUMAB
     Indication: BREAST CANCER METASTATIC
     Dosage: 840 MG, EVERY 3 WEEKS
     Route: 042
     Dates: start: 20170519
  5. CYCLOPHOSPHAMIDE. [Concomitant]
     Active Substance: CYCLOPHOSPHAMIDE
     Indication: BREAST CANCER METASTATIC
     Dosage: ON DAY 1 OF 21 DAY CYCLE
     Route: 065
     Dates: start: 2014
  6. TRASTUZUMAB (UNKNOWN) [Suspect]
     Active Substance: TRASTUZUMAB
     Dosage: 640 MG, EVERY 3 WEEKS
     Route: 041
     Dates: start: 20170519
  7. TRASTUZUMAB (UNKNOWN) [Suspect]
     Active Substance: TRASTUZUMAB
     Dosage: UNK, FOR ONE YEAR
     Route: 065
     Dates: start: 2014
  8. PACLITAXEL. [Suspect]
     Active Substance: PACLITAXEL
     Dosage: INCREASED TO FULL DOSAGE OF 80 MG/M2 (DT 140 MG).
     Route: 065
  9. TAMOXIFENE [TAMOXIFEN] [Concomitant]
     Active Substance: TAMOXIFEN
     Indication: ADJUVANT THERAPY
  10. TRASTUZUMAB (UNKNOWN) [Suspect]
     Active Substance: TRASTUZUMAB
     Indication: BREAST CANCER METASTATIC
     Dosage: 2 MG/KG
     Route: 041
     Dates: start: 2014
  11. EPIRUBICIN [Concomitant]
     Active Substance: EPIRUBICIN
     Indication: BREAST CANCER METASTATIC
     Dosage: ON DAY 1 OF 21 DAY CYCLE
     Route: 065
     Dates: start: 2014
  12. TRASTUZUMAB (UNKNOWN) [Suspect]
     Active Substance: TRASTUZUMAB
     Dosage: 4 MG/KG, LOADING DOSE
     Route: 041
     Dates: start: 2014

REACTIONS (3)
  - Neurotoxicity [Recovering/Resolving]
  - Hepatic encephalopathy [Fatal]
  - Abdominal pain [Unknown]

NARRATIVE: CASE EVENT DATE: 20170512
